FAERS Safety Report 9248611 (Version 3)
Quarter: 2013Q2

REPORT INFORMATION
  Report Type: Spontaneous
  Country: JP (occurrence: JP)
  Receive Date: 20130423
  Receipt Date: 20130502
  Transmission Date: 20140414
  Serious: Yes (Hospitalization)
  Sender: FDA-Public Use
  Company Number: JP-PFIZER INC-2013125049

PATIENT
  Age: 69 Year
  Sex: Male

DRUGS (4)
  1. CALCIUM FOLINATE [Suspect]
     Indication: METASTASES TO LIVER
     Dosage: UNK
  2. FLUOROURACIL [Suspect]
     Indication: METASTASES TO LIVER
     Dosage: UNK
  3. OXALIPLATIN [Suspect]
     Indication: METASTASES TO LIVER
     Dosage: UNK
  4. CETUXIMAB [Suspect]
     Indication: METASTASES TO LIVER
     Dosage: UNK

REACTIONS (1)
  - Interstitial lung disease [Not Recovered/Not Resolved]
